FAERS Safety Report 9435388 (Version 2)
Quarter: 2013Q3

REPORT INFORMATION
  Report Type: Spontaneous
  Country: IT (occurrence: None)
  Receive Date: 20130730
  Receipt Date: 20130802
  Transmission Date: 20140515
  Serious: Yes (Life-Threatening)
  Sender: FDA-Public Use
  Company Number: TIF2013A00123

PATIENT
  Age: 64 Year
  Sex: Female

DRUGS (11)
  1. COMPETACT [Suspect]
     Indication: TYPE 2 DIABETES MELLITUS
     Dosage: 2 IN 1 D
     Route: 048
     Dates: start: 20060101, end: 20130717
  2. SELEPARINA (NADROPARIN CALCIUM) [Concomitant]
  3. LASIX (FUROSEMIDE) [Concomitant]
  4. KARVEA (IRBESARTAN) [Concomitant]
  5. PERIDON (DOMPERIDONE) [Concomitant]
  6. TOTALIP (ATORVASTATIN CALCIUM) [Concomitant]
  7. DEPONIT (GLYCERYL TRINITRATE) [Concomitant]
  8. MEPRAL (OMEPRAZOLE) [Concomitant]
  9. TENORIM (ATENOLOL) [Concomitant]
  10. TACHIDOL (CODEINE PHOSPHATE, PARACETAMOL) [Concomitant]
  11. CONTRAMOL (TRAMADOL HYDROCHLORIDE) [Suspect]

REACTIONS (4)
  - Hypoglycaemia [None]
  - Lactic acidosis [None]
  - Renal failure acute [None]
  - Haemodialysis [None]
